FAERS Safety Report 4957404-8 (Version None)
Quarter: 2006Q1

REPORT INFORMATION
  Report Type: 
  Country: None (occurrence: None)
  Receive Date: 20060327
  Receipt Date: 20060314
  Transmission Date: 20060701
  Serious: Yes (Other)
  Sender: FDA-Public Use
  Company Number: 02/03951-USE

PATIENT
  Age: 42 Year
  Sex: Female
  Weight: 133 kg

DRUGS (8)
  1. BETASERON [Suspect]
     Indication: RELAPSING-REMITTING MULTIPLE SCLEROSIS
     Dosage: 8 MIU, QOD, SUBCUTANEOUS
     Route: 058
     Dates: start: 19990813, end: 20011001
  2. AVONEX [Suspect]
     Indication: MULTIPLE SCLEROSIS
     Dates: start: 20011201, end: 20020301
  3. EFFEXOR [Concomitant]
  4. ZANAFLEX [Concomitant]
  5. BACLOFEN [Concomitant]
  6. IMITREX [Concomitant]
  7. DESYREL (TRAZOSONE HYDROCHLORIDE) [Concomitant]
  8. PREVACID [Concomitant]

REACTIONS (9)
  - CONDITION AGGRAVATED [None]
  - FATIGUE [None]
  - HEADACHE [None]
  - LEUKOPLAKIA ORAL [None]
  - LIP AND/OR ORAL CAVITY CANCER RECURRENT [None]
  - MULTIPLE SCLEROSIS [None]
  - OPTIC NEURITIS [None]
  - RECURRENT CANCER [None]
  - TONGUE NEOPLASM MALIGNANT STAGE UNSPECIFIED [None]
